FAERS Safety Report 16197313 (Version 6)
Quarter: 2019Q3

REPORT INFORMATION
  Report Type: Report from Study
  Country: AU (occurrence: AU)
  Receive Date: 20190415
  Receipt Date: 20190717
  Transmission Date: 20191004
  Serious: Yes (Other)
  Sender: FDA-Public Use
  Company Number: AU-ROCHE-2153811

PATIENT
  Age: 71 Year
  Sex: Female
  Weight: 65.7 kg

DRUGS (23)
  1. DOXORUBICIN [Suspect]
     Active Substance: DOXORUBICIN
     Indication: DIFFUSE LARGE B-CELL LYMPHOMA
     Route: 042
     Dates: start: 20170718
  2. PREDNISONE. [Suspect]
     Active Substance: PREDNISONE
     Dosage: DATE OF MOST RECENT DOSE PRIOR TO EVENT ONSET: 20/FEB/2019 (DOSE: 1 MG/M2)
     Route: 048
     Dates: start: 20170718
  3. VENTOLIN [Concomitant]
     Active Substance: ALBUTEROL SULFATE
     Indication: COUGH
     Route: 065
     Dates: start: 20180525, end: 20180614
  4. CEPHALEXIN [CEFALEXIN] [Concomitant]
     Active Substance: CEPHALEXIN
     Indication: SINUSITIS
     Dosage: FOR 10 DAYS
     Route: 065
     Dates: start: 20180727, end: 20180805
  5. RITUXIMAB. [Suspect]
     Active Substance: RITUXIMAB
     Indication: DIFFUSE LARGE B-CELL LYMPHOMA
     Route: 041
     Dates: start: 20170718
  6. PREDNISOLONE. [Suspect]
     Active Substance: PREDNISOLONE
     Indication: DIFFUSE LARGE B-CELL LYMPHOMA
     Route: 048
     Dates: start: 20170810
  7. PREDNISONE. [Suspect]
     Active Substance: PREDNISONE
     Route: 048
     Dates: start: 20180727, end: 20180809
  8. LORATADINE. [Concomitant]
     Active Substance: LORATADINE
     Indication: SINUSITIS
     Route: 065
     Dates: start: 20171120
  9. NORMAL SALINE [Concomitant]
     Active Substance: SODIUM CHLORIDE
     Indication: SINUSITIS
     Route: 065
     Dates: start: 20180322
  10. PREDNISONE. [Suspect]
     Active Substance: PREDNISONE
     Indication: DIFFUSE LARGE B-CELL LYMPHOMA
     Dosage: DATE MOST RECENT DOSE 5 MG/M2 PRIOR TO EVENT ONSET: 08/APR/2018?DATE MOST RECENT DOSE 1 MG/M2 PRIOR
     Route: 048
     Dates: start: 20170718
  11. SYMBICORT [Concomitant]
     Active Substance: BUDESONIDE\FORMOTEROL FUMARATE DIHYDRATE
     Indication: COUGH
     Route: 065
     Dates: start: 20180622
  12. ATEZOLIZUMAB. [Suspect]
     Active Substance: ATEZOLIZUMAB
     Indication: DIFFUSE LARGE B-CELL LYMPHOMA
     Dosage: MOST RECENT DOSE OF ATEZOLIZUMAB (1200 MG) PRIOR TO EVENT ON 28/MAY/2018
     Route: 041
     Dates: start: 20170810
  13. METOCLOPRAMIDE. [Concomitant]
     Active Substance: METOCLOPRAMIDE
     Indication: NAUSEA
     Route: 065
     Dates: start: 20170718
  14. GASTROSTOP [Concomitant]
     Indication: DIARRHOEA
     Route: 065
     Dates: start: 20180524
  15. THYROXINE [Concomitant]
     Active Substance: LEVOTHYROXINE
     Indication: AUTOIMMUNE THYROIDITIS
     Route: 065
     Dates: start: 2005
  16. LOPERAMIDE [Concomitant]
     Active Substance: LOPERAMIDE
     Indication: DIARRHOEA
     Route: 065
     Dates: start: 20170719, end: 20180524
  17. NASONEX [Concomitant]
     Active Substance: MOMETASONE FUROATE
     Indication: COUGH
     Dosage: NASAL
     Route: 065
     Dates: start: 20180305, end: 20180801
  18. PANADOL [Concomitant]
     Active Substance: ACETAMINOPHEN
     Indication: PAIN
     Route: 065
     Dates: start: 20161201
  19. VINCRISTINE [Suspect]
     Active Substance: VINCRISTINE
     Indication: DIFFUSE LARGE B-CELL LYMPHOMA
     Route: 042
     Dates: start: 20170718
  20. CYCLOPHOSPHAMIDE. [Suspect]
     Active Substance: CYCLOPHOSPHAMIDE
     Indication: DIFFUSE LARGE B-CELL LYMPHOMA
     Route: 042
     Dates: start: 20170718
  21. LIQUIFILM [Concomitant]
     Indication: DRY EYE
     Route: 065
     Dates: start: 20170831
  22. TURMERIC [CURCUMA LONGA] [Concomitant]
     Route: 065
     Dates: start: 20180328, end: 20180727
  23. TILADE [Concomitant]
     Active Substance: NEDOCROMIL SODIUM
     Indication: COUGH
     Route: 065
     Dates: start: 20180511, end: 20180525

REACTIONS (2)
  - Hepatitis [Recovered/Resolved]
  - Hepatitis acute [Recovered/Resolved]

NARRATIVE: CASE EVENT DATE: 20180615
